FAERS Safety Report 12147828 (Version 1)
Quarter: 2016Q1

REPORT INFORMATION
  Report Type: Spontaneous
  Country: BD (occurrence: BD)
  Receive Date: 20160304
  Receipt Date: 20160304
  Transmission Date: 20160526
  Serious: Yes (Death, Hospitalization)
  Sender: FDA-Public Use
  Company Number: BD-SA-2016SA042749

PATIENT
  Age: 49 Year
  Sex: Female
  Weight: 62 kg

DRUGS (1)
  1. APIDRA [Suspect]
     Active Substance: INSULIN GLULISINE
     Indication: TYPE 2 DIABETES MELLITUS
     Dosage: DOSE: 12+0+8 IU
     Route: 058
     Dates: start: 201304, end: 20140805

REACTIONS (2)
  - Somnolence [Fatal]
  - Vomiting [Fatal]

NARRATIVE: CASE EVENT DATE: 20140801
